FAERS Safety Report 7270763-9 (Version None)
Quarter: 2011Q1

REPORT INFORMATION
  Report Type: 
  Country: None (occurrence: None)
  Receive Date: 20110202
  Receipt Date: 20110124
  Transmission Date: 20110831
  Serious: Yes (Hospitalization)
  Sender: FDA-Public Use
  Company Number: US-PURDUE-USA-2010-0053647

PATIENT
  Age: 41 Year
  Sex: Female
  Weight: 50.794 kg

DRUGS (5)
  1. ATIVAN [Concomitant]
     Indication: ANXIETY
     Dosage: UNK
     Dates: start: 20080101
  2. MORPHINE SULFATE [Suspect]
     Indication: ABDOMINAL PAIN UPPER
     Dosage: 15 MG, BID PRN
     Route: 048
     Dates: start: 20100901
  3. AXITINIB [Suspect]
     Indication: COLORECTAL CANCER METASTATIC
     Dosage: 10 MG, BID
     Route: 048
     Dates: start: 20101023
  4. MS CONTIN [Suspect]
     Indication: ABDOMINAL PAIN UPPER
     Dosage: 15 MG, Q8H
     Route: 048
     Dates: start: 20100901
  5. SENOKOT                            /00142205/ [Concomitant]
     Indication: CONSTIPATION
     Dosage: UNK
     Dates: start: 20100901

REACTIONS (4)
  - CONSTIPATION [None]
  - HYPONATRAEMIA [None]
  - SOMNOLENCE [None]
  - FATIGUE [None]
